FAERS Safety Report 23225985 (Version 1)
Quarter: 2023Q4

REPORT INFORMATION
  Report Type: Spontaneous
  Country: ZA (occurrence: ZA)
  Receive Date: 20231124
  Receipt Date: 20231124
  Transmission Date: 20240109
  Serious: Yes (Other)
  Sender: FDA-Public Use
  Company Number: ZA-SANDOZ-SDZ2023ZA056378

PATIENT
  Age: 29 Year
  Sex: Male

DRUGS (5)
  1. CYCLOSPORINE [Suspect]
     Active Substance: CYCLOSPORINE
     Indication: Product used for unknown indication
     Dosage: 100 MG, BID
     Route: 065
  2. PREDNISONE [Suspect]
     Active Substance: PREDNISONE
     Indication: Product used for unknown indication
     Dosage: UNK
     Route: 065
  3. VALACYCLOVIR HYDROCHLORIDE [Concomitant]
     Active Substance: VALACYCLOVIR HYDROCHLORIDE
     Indication: Product used for unknown indication
     Dosage: UNK
     Route: 065
  4. VALGANCICLOVIR [Concomitant]
     Active Substance: VALGANCICLOVIR
     Indication: Product used for unknown indication
     Dosage: UNK
     Route: 065
  5. ANDOLEX [Concomitant]
     Indication: Product used for unknown indication
     Dosage: UNK
     Route: 065

REACTIONS (2)
  - Graft versus host disease [Not Recovered/Not Resolved]
  - Drug ineffective [Unknown]

NARRATIVE: CASE EVENT DATE: 20230601
